FAERS Safety Report 6182187-6 (Version None)
Quarter: 2009Q2

REPORT INFORMATION
  Report Type: 
  Country: None (occurrence: None)
  Receive Date: 20090507
  Receipt Date: 20090428
  Transmission Date: 20091009
  Serious: Yes (Other)
  Sender: FDA-Public Use
  Company Number: PHHY2009SE16011

PATIENT
  Sex: Male

DRUGS (1)
  1. RITALIN [Suspect]

REACTIONS (1)
  - ATRIAL FIBRILLATION [None]
